FAERS Safety Report 14251101 (Version 1)
Quarter: 2017Q4

REPORT INFORMATION
  Report Type: Spontaneous
  Country: US (occurrence: US)
  Receive Date: 20171205
  Receipt Date: 20171205
  Transmission Date: 20180321
  Serious: Yes (Hospitalization)
  Sender: FDA-Public Use
  Company Number: US-ASTRAZENECA-2017SF21987

PATIENT
  Sex: Female

DRUGS (1)
  1. IRESSA [Suspect]
     Active Substance: GEFITINIB
     Dosage: DAILY
     Route: 048

REACTIONS (2)
  - Metastatic neoplasm [Not Recovered/Not Resolved]
  - Gastric dilatation [Unknown]

NARRATIVE: CASE EVENT DATE: 201711
